FAERS Safety Report 10500178 (Version 1)
Quarter: 2014Q4

REPORT INFORMATION
  Report Type: Spontaneous
  Country: US (occurrence: US)
  Receive Date: 20141006
  Receipt Date: 20141006
  Transmission Date: 20150528
  Serious: No
  Sender: FDA-Public Use
  Company Number: US-AMGEN INC.-USASP2014049171

PATIENT
  Age: 85 Year
  Sex: Female

DRUGS (1)
  1. PROLIA [Suspect]
     Active Substance: DENOSUMAB
     Indication: OSTEOPOROSIS POSTMENOPAUSAL
     Dosage: UNK
     Route: 065
     Dates: start: 20140519

REACTIONS (7)
  - Activities of daily living impaired [Unknown]
  - Pain [Unknown]
  - Nocturia [Unknown]
  - Pain in extremity [Unknown]
  - Back pain [Unknown]
  - Musculoskeletal pain [Unknown]
  - Constipation [Unknown]

NARRATIVE: CASE EVENT DATE: 20140521
